FAERS Safety Report 17092925 (Version 2)
Quarter: 2019Q4

REPORT INFORMATION
  Report Type: Spontaneous
  Country: BG (occurrence: BG)
  Receive Date: 20191129
  Receipt Date: 20191206
  Transmission Date: 20200122
  Serious: Yes (Hospitalization)
  Sender: FDA-Public Use
  Company Number: BG-PFIZER INC-2019511353

PATIENT
  Age: 55 Year
  Sex: Female

DRUGS (2)
  1. METHYLPREDNISOLONE. [Suspect]
     Active Substance: METHYLPREDNISOLONE
     Indication: AUTOIMMUNE HEPATITIS
     Dosage: 40 MG, DAILY
     Dates: start: 201710
  2. METHYLPREDNISOLONE. [Suspect]
     Active Substance: METHYLPREDNISOLONE
     Dosage: 4 MG, DAILY
     Dates: start: 2017

REACTIONS (3)
  - Rash maculo-papular [Unknown]
  - Depression [Not Recovered/Not Resolved]
  - Psychiatric symptom [Not Recovered/Not Resolved]

NARRATIVE: CASE EVENT DATE: 2017
